FAERS Safety Report 17454697 (Version 1)
Quarter: 2020Q1

REPORT INFORMATION
  Report Type: Spontaneous
  Country: US (occurrence: US)
  Receive Date: 20200224
  Receipt Date: 20200224
  Transmission Date: 20200409
  Serious: No
  Sender: FDA-Public Use
  Company Number: None

PATIENT
  Age: 62 Year
  Sex: Female
  Weight: 54 kg

DRUGS (1)
  1. ARNICARE [Suspect]
     Active Substance: HOMEOPATHICS
     Indication: PAIN
     Dosage: ?          QUANTITY:1 THIN LAYER;?
     Route: 061
     Dates: start: 20200224, end: 20200224

REACTIONS (3)
  - Erythema [None]
  - Swelling of eyelid [None]
  - Swelling face [None]

NARRATIVE: CASE EVENT DATE: 20200224
